FAERS Safety Report 7125241-4 (Version None)
Quarter: 2010Q4

REPORT INFORMATION
  Report Type: 
  Country: None (occurrence: None)
  Receive Date: 20101129
  Receipt Date: 20101124
  Transmission Date: 20110411
  Serious: Yes (Death, Hospitalization)
  Sender: FDA-Public Use
  Company Number: PHHO2010FR07235

PATIENT
  Sex: Male

DRUGS (4)
  1. NEORAL [Suspect]
     Indication: RENAL TRANSPLANT
     Dosage: 225MG/DAY
     Route: 048
     Dates: start: 20060721, end: 20091126
  2. CELLCEPT [Concomitant]
  3. PREDNISONE ACETATE [Concomitant]
  4. ANDROTARDYL [Concomitant]

REACTIONS (7)
  - BLADDER ADENOCARCINOMA STAGE UNSPECIFIED [None]
  - METASTASES TO PERITONEUM [None]
  - METASTATIC NEOPLASM [None]
  - PROSTATECTOMY [None]
  - PYURIA [None]
  - SEMINAL VESICLE OPERATION [None]
  - URINARY CYSTECTOMY [None]
